FAERS Safety Report 8878993 (Version 1)
Quarter: 2012Q4

REPORT INFORMATION
  Report Type: 
  Country: IT (occurrence: IT)
  Receive Date: 20121026
  Receipt Date: 20121026
  Transmission Date: 20130627
  Serious: Yes (Hospitalization, Other)
  Sender: FDA-Public Use
  Company Number: IT-ALLERGAN-1214057US

PATIENT
  Age: 57 Year
  Sex: Female

DRUGS (1)
  1. GANFORT [Suspect]
     Indication: GLAUCOMA
     Dosage: UNK UNK, tid
     Dates: start: 20120830, end: 20120930

REACTIONS (2)
  - Amnesia [Recovered/Resolved]
  - Incorrect dose administered [Unknown]
